FAERS Safety Report 7393156 (Version 3)
Quarter: 2014Q2

REPORT INFORMATION
  Report Type: Report from Study
  Country: US (occurrence: US)
  Receive Date: 20100519
  Receipt Date: 20140417
  Transmission Date: 20141212
  Serious: Yes (Hospitalization)
  Sender: FDA-Public Use
  Company Number: US-ALEXION-A201000540

PATIENT
  Sex: Female

DRUGS (1)
  1. SOLIRIS [Suspect]
     Indication: PAROXYSMAL NOCTURNAL HAEMOGLOBINURIA
     Dosage: UNK
     Route: 042

REACTIONS (9)
  - Cardiovascular evaluation [Recovered/Resolved]
  - Pain in jaw [Recovered/Resolved]
  - Haemoglobinuria [Unknown]
  - Neutropenia [Unknown]
  - Thrombocytopenia [Unknown]
  - Dizziness [Not Recovered/Not Resolved]
  - Trismus [Unknown]
  - Fatigue [Not Recovered/Not Resolved]
  - Anaemia [Unknown]
